FAERS Safety Report 20013503 (Version 1)
Quarter: 2021Q4

REPORT INFORMATION
  Report Type: Spontaneous
  Country: US (occurrence: US)
  Receive Date: 20211029
  Receipt Date: 20211029
  Transmission Date: 20220303
  Serious: No
  Sender: FDA-Public Use
  Company Number: US-JNJFOC-20211021495

PATIENT
  Age: 49 Year
  Sex: Female
  Weight: 112.14 kg

DRUGS (2)
  1. TREMFYA [Suspect]
     Active Substance: GUSELKUMAB
     Indication: Psoriasis
     Route: 065
  2. COVID-19 VACCINE [Concomitant]
     Indication: Prophylaxis

REACTIONS (3)
  - COVID-19 [Unknown]
  - Arthropod bite [Unknown]
  - Multiple allergies [Unknown]
